FAERS Safety Report 12846629 (Version 1)
Quarter: 2016Q4

REPORT INFORMATION
  Report Type: Spontaneous
  Country: None (occurrence: US)
  Receive Date: 20161014
  Receipt Date: 20161014
  Transmission Date: 20170207
  Serious: Yes (Other)
  Sender: FDA-Public Use
  Company Number: US-TEVA-701649USA

PATIENT
  Sex: Female
  Weight: 77.18 kg

DRUGS (8)
  1. GABAPENTIN. [Concomitant]
     Active Substance: GABAPENTIN
     Indication: FIBROMYALGIA
  2. PROGESTERONE. [Concomitant]
     Active Substance: PROGESTERONE
  3. METFORMIN [Concomitant]
     Active Substance: METFORMIN HYDROCHLORIDE
  4. VITAMIN D [Concomitant]
     Active Substance: CHOLECALCIFEROL
  5. PRILOSEC [Concomitant]
     Active Substance: OMEPRAZOLE MAGNESIUM
  6. NUVIGIL [Suspect]
     Active Substance: ARMODAFINIL
     Indication: DISTURBANCE IN ATTENTION
  7. ETODOLAC. [Suspect]
     Active Substance: ETODOLAC
     Route: 065
  8. NUVIGIL [Suspect]
     Active Substance: ARMODAFINIL
     Indication: INSOMNIA
     Dates: start: 201410

REACTIONS (10)
  - Renal failure [Unknown]
  - Migraine [Unknown]
  - Adverse event [Unknown]
  - Intentional product use issue [Unknown]
  - Diarrhoea [Unknown]
  - Headache [Unknown]
  - Anxiety [Unknown]
  - Mood altered [Unknown]
  - Decreased appetite [Unknown]
  - Depression [Unknown]
